FAERS Safety Report 19478769 (Version 1)
Quarter: 2021Q2

REPORT INFORMATION
  Report Type: Spontaneous
  Country: HR (occurrence: HR)
  Receive Date: 20210630
  Receipt Date: 20210630
  Transmission Date: 20210717
  Serious: Yes (Hospitalization, Other)
  Sender: FDA-Public Use
  Company Number: HR-PFIZER INC-2021730048

PATIENT
  Sex: Female

DRUGS (5)
  1. RITUXIMAB. [Suspect]
     Active Substance: RITUXIMAB
     Indication: CHRONIC LYMPHOCYTIC LEUKAEMIA
     Dosage: UNK
     Dates: start: 201909
  2. IMBRUVICA [Suspect]
     Active Substance: IBRUTINIB
     Indication: CHRONIC LYMPHOCYTIC LEUKAEMIA
     Dosage: UNK
     Route: 048
     Dates: start: 201906, end: 201909
  3. VENETOCLAX. [Suspect]
     Active Substance: VENETOCLAX
     Indication: CHRONIC LYMPHOCYTIC LEUKAEMIA
     Dosage: GRADUAL INCREASE OF DOSE ACCORDING TO DOSING PROTOCOL UP TO 400 MG
     Route: 048
     Dates: start: 201909, end: 201911
  4. VENETOCLAX. [Suspect]
     Active Substance: VENETOCLAX
     Dosage: 200 MG
     Route: 048
     Dates: start: 201911, end: 202001
  5. VENETOCLAX. [Suspect]
     Active Substance: VENETOCLAX
     Dosage: 100 MG
     Route: 048
     Dates: start: 202001

REACTIONS (11)
  - Infection [Unknown]
  - Renal impairment [Unknown]
  - Immunodeficiency [Unknown]
  - Respiratory tract infection [Unknown]
  - Epistaxis [Recovered/Resolved]
  - Anaemia [Unknown]
  - Hypercalcaemia [Unknown]
  - Granulocytopenia [Unknown]
  - Asphyxia [Not Recovered/Not Resolved]
  - Urinary tract infection [Recovered/Resolved]
  - Palpitations [Recovered/Resolved]

NARRATIVE: CASE EVENT DATE: 201909
